FAERS Safety Report 12315267 (Version 4)
Quarter: 2016Q3

REPORT INFORMATION
  Report Type: Spontaneous
  Country: CA (occurrence: CA)
  Receive Date: 20160428
  Receipt Date: 20160727
  Transmission Date: 20161109
  Serious: Yes (Life-Threatening, Hospitalization)
  Sender: FDA-Public Use
  Company Number: CA-JNJFOC-20151110487

PATIENT

DRUGS (3)
  1. RISPERDAL CONSTA [Suspect]
     Active Substance: RISPERIDONE
     Indication: SCHIZOPHRENIA
     Route: 065
  2. RISPERDAL CONSTA [Suspect]
     Active Substance: RISPERIDONE
     Indication: SCHIZOPHRENIA
     Route: 065
     Dates: start: 20101213
  3. RISPERDAL CONSTA [Suspect]
     Active Substance: RISPERIDONE
     Indication: SCHIZOPHRENIA
     Route: 065
     Dates: start: 20101105, end: 201012

REACTIONS (44)
  - Headache [Unknown]
  - Cough [Unknown]
  - Restless legs syndrome [Not Recovered/Not Resolved]
  - Drooling [Unknown]
  - Arthralgia [Unknown]
  - Skin lesion [Unknown]
  - Pain in extremity [Unknown]
  - Incorrect dose administered [Unknown]
  - Loss of consciousness [Unknown]
  - Hyperhidrosis [Unknown]
  - Urinary tract pain [Unknown]
  - Increased appetite [Unknown]
  - Nervousness [Unknown]
  - Disturbance in attention [Unknown]
  - Amnesia [Unknown]
  - Depression [Unknown]
  - Fatigue [Unknown]
  - Vision blurred [Unknown]
  - Musculoskeletal stiffness [Unknown]
  - Hospitalisation [Unknown]
  - Thinking abnormal [Unknown]
  - Wheezing [Unknown]
  - Swollen tongue [Unknown]
  - Nasal congestion [Not Recovered/Not Resolved]
  - Decreased appetite [Unknown]
  - Agitation [Unknown]
  - Back pain [Unknown]
  - Condition aggravated [Unknown]
  - Rash [Unknown]
  - Feeling abnormal [Unknown]
  - Epistaxis [Not Recovered/Not Resolved]
  - Dizziness [Unknown]
  - Abdominal pain upper [Unknown]
  - Abdominal discomfort [Unknown]
  - Myocardial infarction [Unknown]
  - Irritability [Unknown]
  - Hypoaesthesia [Unknown]
  - Pruritus [Unknown]
  - Secretion discharge [Unknown]
  - Pain [Unknown]
  - Chest discomfort [Unknown]
  - Angina pectoris [Unknown]
  - Libido decreased [Not Recovered/Not Resolved]
  - Genital pain [Unknown]

NARRATIVE: CASE EVENT DATE: 2010
